FAERS Safety Report 8993319 (Version 1)
Quarter: 2013Q1

REPORT INFORMATION
  Report Type: Spontaneous
  Country: US (occurrence: US)
  Receive Date: 20130102
  Receipt Date: 20130102
  Transmission Date: 20140127
  Serious: No
  Sender: FDA-Public Use
  Company Number: US-PFIZER INC-2012332478

PATIENT
  Age: 80 Year
  Sex: Female
  Weight: 61.68 kg

DRUGS (3)
  1. LIPITOR [Suspect]
     Indication: BLOOD CHOLESTEROL INCREASED
     Dosage: 10 MG, DAILY
     Route: 048
  2. ZOLOFT [Suspect]
     Indication: NERVOUSNESS
     Dosage: UNK
     Dates: start: 2002
  3. DIOVAN HCT [Concomitant]
     Indication: HYPERTENSION
     Dosage: 160/12.5 MG, DAILY

REACTIONS (2)
  - Herpes zoster [Unknown]
  - Pruritus [Unknown]
